FAERS Safety Report 16421860 (Version 4)
Quarter: 2020Q1

REPORT INFORMATION
  Report Type: Spontaneous
  Country: US (occurrence: US)
  Receive Date: 20190612
  Receipt Date: 20200319
  Transmission Date: 20200409
  Serious: No
  Sender: FDA-Public Use
  Company Number: US-INCYTE CORPORATION-2019IN005621

PATIENT

DRUGS (5)
  1. JAKAFI [Suspect]
     Active Substance: RUXOLITINIB
     Dosage: 30 MILLIGRAM, QD (10MG TABLETS)
     Route: 048
     Dates: start: 20181103
  2. JAKAFI [Suspect]
     Active Substance: RUXOLITINIB
     Dosage: 10 MILLIGRAM, BID
     Route: 048
     Dates: start: 201811
  3. JAKAFI [Suspect]
     Active Substance: RUXOLITINIB
     Dosage: 10 MILLIGRAM, BID
     Route: 048
     Dates: start: 20200101
  4. JAKAFI [Suspect]
     Active Substance: RUXOLITINIB
     Dosage: 10 MILLIGRAM, BID
     Route: 048
     Dates: start: 20181123
  5. JAKAFI [Suspect]
     Active Substance: RUXOLITINIB
     Dosage: 30MG (20MG AM AND 10MG PM)
     Route: 048
     Dates: start: 201811

REACTIONS (9)
  - Blood triglycerides increased [Unknown]
  - Arthralgia [Unknown]
  - Diarrhoea [Unknown]
  - Urticaria [Unknown]
  - Depression [Unknown]
  - Muscle atrophy [Unknown]
  - Blood cholesterol increased [Unknown]
  - Snoring [Unknown]
  - Muscle spasms [Unknown]

NARRATIVE: CASE EVENT DATE: 20181230
